FAERS Safety Report 10570514 (Version 1)
Quarter: 2014Q4

REPORT INFORMATION
  Report Type: Spontaneous
  Country: US (occurrence: US)
  Receive Date: 20141107
  Receipt Date: 20141107
  Transmission Date: 20150529
  Serious: No
  Sender: FDA-Public Use
  Company Number: US-BAYER-2014-164554

PATIENT
  Age: 17 Year
  Sex: Male
  Weight: 81 kg

DRUGS (3)
  1. ALEVE [Suspect]
     Active Substance: NAPROXEN SODIUM
     Dosage: UNK
     Route: 048
  2. ALEVE [Suspect]
     Active Substance: NAPROXEN SODIUM
     Dosage: 5 DF, ONCE
     Route: 048
     Dates: start: 20141104, end: 20141104
  3. IBUPROFEN. [Suspect]
     Active Substance: IBUPROFEN
     Dosage: 8-9 DF, ONCE
     Route: 048

REACTIONS (3)
  - Dizziness [Unknown]
  - Extra dose administered [None]
  - Palpitations [Unknown]

NARRATIVE: CASE EVENT DATE: 20141104
